FAERS Safety Report 12347134 (Version 1)
Quarter: 2016Q2

REPORT INFORMATION
  Report Type: Spontaneous
  Country: US (occurrence: US)
  Receive Date: 20160509
  Receipt Date: 20160509
  Transmission Date: 20160815
  Serious: Yes (Other)
  Sender: FDA-Public Use
  Company Number: US-ELI_LILLY_AND_COMPANY-US201605002103

PATIENT
  Age: 24 Year
  Sex: Male

DRUGS (2)
  1. GLUCAGON. [Suspect]
     Active Substance: GLUCAGON
     Indication: PANCREATITIS ACUTE
     Dosage: UNK
     Route: 065
  2. APROTININ [Concomitant]
     Active Substance: APROTININ
     Indication: PANCREATITIS ACUTE

REACTIONS (2)
  - Off label use [Unknown]
  - Necrolytic migratory erythema [Recovered/Resolved]
